FAERS Safety Report 6027025-7 (Version None)
Quarter: 2009Q1

REPORT INFORMATION
  Report Type: 
  Country: None (occurrence: None)
  Receive Date: 20090105
  Receipt Date: 20081204
  Transmission Date: 20090719
  Serious: No
  Sender: FDA-Public Use
  Company Number: US-BAYER-200837959NA

PATIENT
  Age: 27 Year
  Sex: Female

DRUGS (1)
  1. MIRENA [Suspect]
     Indication: DRUG USE FOR UNKNOWN INDICATION
     Route: 015
     Dates: start: 20081009, end: 20081030

REACTIONS (6)
  - ABDOMINAL PAIN [None]
  - ANXIETY [None]
  - CRYING [None]
  - HEADACHE [None]
  - IRRITABILITY [None]
  - VAGINAL HAEMORRHAGE [None]
